FAERS Safety Report 5203543-6 (Version None)
Quarter: 2007Q1

REPORT INFORMATION
  Report Type: 
  Country: None (occurrence: None)
  Receive Date: 20070105
  Receipt Date: 20061227
  Transmission Date: 20070707
  Serious: Yes (Hospitalization)
  Sender: FDA-Public Use
  Company Number: 2006SP008903

PATIENT
  Age: 61 Year
  Sex: Female

DRUGS (2)
  1. PEG-INTRON [Suspect]
     Indication: HEPATITIS C
     Dosage: 50 MCG;QW;SC
     Route: 058
     Dates: start: 20050308
  2. REBETOL [Suspect]
     Indication: HEPATITIS C
     Dosage: 300 MG;QD;PO
     Route: 048
     Dates: start: 20050308

REACTIONS (5)
  - ABSCESS INTESTINAL [None]
  - COLITIS ULCERATIVE [None]
  - DIARRHOEA HAEMORRHAGIC [None]
  - MALAISE [None]
  - PSEUDOMEMBRANOUS COLITIS [None]
